FAERS Safety Report 25455218 (Version 1)
Quarter: 2025Q2

REPORT INFORMATION
  Report Type: Spontaneous
  Country: JP (occurrence: JP)
  Receive Date: 20250619
  Receipt Date: 20250619
  Transmission Date: 20250716
  Serious: Yes (Death, Hospitalization, Other)
  Sender: CHEPLAPHARM
  Company Number: JP-CLGN-JP-CLI-2025-001359

PATIENT
  Age: 79 Year
  Sex: Female

DRUGS (6)
  1. HYDROXYUREA [Suspect]
     Active Substance: HYDROXYUREA
     Indication: Essential thrombocythaemia
     Route: 048
  2. ASPIRIN [Suspect]
     Active Substance: ASPIRIN
     Indication: Essential thrombocythaemia
  3. PREDNISOLONE [Suspect]
     Active Substance: PREDNISOLONE
     Indication: Interstitial lung disease
  4. MIGLITOL [Suspect]
     Active Substance: MIGLITOL
     Indication: Type 2 diabetes mellitus
  5. TENELIGLIPTIN [Suspect]
     Active Substance: TENELIGLIPTIN
     Indication: Type 2 diabetes mellitus
  6. MITIGLINIDE [Suspect]
     Active Substance: MITIGLINIDE
     Indication: Type 2 diabetes mellitus

REACTIONS (4)
  - Cholangitis [Fatal]
  - Bile duct stone [Fatal]
  - Pneumatosis intestinalis [Recovering/Resolving]
  - Nephropathy [Unknown]
